FAERS Safety Report 22244145 (Version 2)
Quarter: 2023Q2

REPORT INFORMATION
  Report Type: Other
  Country: CA (occurrence: CA)
  Receive Date: 20230424
  Receipt Date: 20230517
  Transmission Date: 20230722
  Serious: Yes (Death, Other)
  Sender: FDA-Public Use
  Company Number: CA-APOTEX-2023AP007111

PATIENT
  Age: 76 Year
  Sex: Female

DRUGS (2)
  1. LENALIDOMIDE [Suspect]
     Active Substance: LENALIDOMIDE
     Indication: Plasma cell myeloma refractory
     Dosage: 2.5 MILLIGRAM, QD
     Route: 048
     Dates: start: 20230213, end: 2023
  2. LENALIDOMIDE [Suspect]
     Active Substance: LENALIDOMIDE
     Indication: 5q minus syndrome

REACTIONS (1)
  - Death [Fatal]

NARRATIVE: CASE EVENT DATE: 20230411
